FAERS Safety Report 19922528 (Version 2)
Quarter: 2021Q4

REPORT INFORMATION
  Report Type: Other
  Country: US (occurrence: None)
  Receive Date: 20211006
  Receipt Date: 20211101
  Transmission Date: 20220304
  Serious: Yes (Hospitalization, Other)
  Sender: FDA-Public Use
  Company Number: US-ROCHE-2926923

PATIENT
  Sex: Male

DRUGS (1)
  1. XOLAIR [Suspect]
     Active Substance: OMALIZUMAB
     Indication: Product used for unknown indication
     Route: 065

REACTIONS (6)
  - Appendix cancer [Unknown]
  - COVID-19 [Unknown]
  - Gangrene [Unknown]
  - Back pain [Unknown]
  - White blood cell count abnormal [Unknown]
  - Immunoglobulins increased [Unknown]
